FAERS Safety Report 25277616 (Version 1)
Quarter: 2025Q2

REPORT INFORMATION
  Report Type: Spontaneous
  Country: US (occurrence: US)
  Receive Date: 20250507
  Receipt Date: 20250507
  Transmission Date: 20250716
  Serious: No
  Sender: HIKMA
  Company Number: US-HIKMA PHARMACEUTICALS USA INC.-US-H14001-24-08026

PATIENT
  Age: 69 Year
  Sex: Male

DRUGS (10)
  1. AMIKACIN [Suspect]
     Active Substance: AMIKACIN
     Indication: Mycobacterium abscessus infection
     Dosage: UNK UNK, TIW
     Route: 042
     Dates: start: 20240723
  2. AMIKACIN [Suspect]
     Active Substance: AMIKACIN
     Indication: Pneumonia bacterial
  3. IMIPENEM [Suspect]
     Active Substance: IMIPENEM
     Indication: Mycobacterium abscessus infection
     Dosage: 1000 MILLIGRAM, BID, MORNING AND EVENING
     Route: 042
     Dates: start: 20240723
  4. IMIPENEM [Suspect]
     Active Substance: IMIPENEM
     Indication: Pneumonia bacterial
  5. NUZYRA [Suspect]
     Active Substance: OMADACYCLINE
     Indication: Pneumonia bacterial
     Dosage: 150 MILLIGRAM, BID
     Route: 048
     Dates: start: 20240726
  6. NUZYRA [Suspect]
     Active Substance: OMADACYCLINE
     Indication: Mycobacterium abscessus infection
     Dosage: 300 MILLIGRAM, QD
     Route: 048
     Dates: start: 20240724, end: 20240725
  7. CELEXA [Concomitant]
     Active Substance: CITALOPRAM HYDROBROMIDE
     Indication: Product used for unknown indication
     Route: 065
  8. CRESTOR [Concomitant]
     Active Substance: ROSUVASTATIN CALCIUM
     Indication: Product used for unknown indication
     Route: 065
  9. LINEZOLID [Concomitant]
     Active Substance: LINEZOLID
     Indication: Product used for unknown indication
     Dosage: UNK UNK, QD, IN THE EVENING
     Route: 048
     Dates: start: 20240723
  10. VITAMINS NOS [Concomitant]
     Active Substance: VITAMINS
     Indication: Product used for unknown indication
     Route: 065

REACTIONS (6)
  - Hot flush [Not Recovered/Not Resolved]
  - Skin warm [Not Recovered/Not Resolved]
  - Vomiting [Not Recovered/Not Resolved]
  - Nausea [Not Recovered/Not Resolved]
  - Illness [Unknown]
  - Drug level increased [Unknown]

NARRATIVE: CASE EVENT DATE: 20240726
